FAERS Safety Report 4433783-5 (Version None)
Quarter: 2004Q3

REPORT INFORMATION
  Report Type: 
  Country: None (occurrence: None)
  Receive Date: 20040825
  Receipt Date: 20040811
  Transmission Date: 20050211
  Serious: Yes (Disabling, Other)
  Sender: FDA-Public Use
  Company Number: USA030740657

PATIENT
  Age: 64 Year
  Sex: Male
  Weight: 100 kg

DRUGS (7)
  1. HUMALOG [Suspect]
  2. HUMALOG [Suspect]
     Dosage: 58 U DAY
     Dates: start: 20040401
  3. HUMULIN 70/30 [Suspect]
     Indication: DIABETES MELLITUS
     Dosage: 58 U DAY
     Dates: start: 20000101
  4. HUMULIN R [Suspect]
  5. MICRONASE [Concomitant]
  6. GLUCOPHAGE [Concomitant]
  7. ACTOS [Concomitant]

REACTIONS (8)
  - ANGINA PECTORIS [None]
  - ARTERIAL DISORDER [None]
  - BLOOD GLUCOSE DECREASED [None]
  - BLOOD GLUCOSE INCREASED [None]
  - CORONARY ARTERIAL STENT INSERTION [None]
  - HIATUS HERNIA [None]
  - PHARMACEUTICAL PRODUCT COMPLAINT [None]
  - STRESS SYMPTOMS [None]
